FAERS Safety Report 7380004-X (Version None)
Quarter: 2011Q1

REPORT INFORMATION
  Report Type: 
  Country: None (occurrence: None)
  Receive Date: 20110329
  Receipt Date: 20110302
  Transmission Date: 20110831
  Serious: No
  Sender: FDA-Public Use
  Company Number: US-B.I. PHARMACEUTICALS,INC./RIDGEFIELD-2011-BP-06119BP

PATIENT
  Age: 77 Year
  Sex: Female

DRUGS (9)
  1. VASOTEC [Concomitant]
  2. SENOKOT [Concomitant]
  3. MAALOX [Concomitant]
  4. MILK OF MAG [Concomitant]
  5. CEPACOL [Concomitant]
  6. ACETAMINOPHEN [Concomitant]
  7. ZOFRAN [Concomitant]
  8. PRADAXA [Suspect]
     Indication: PULMONARY EMBOLISM
     Dates: start: 20110214
  9. CATAPRES [Concomitant]

REACTIONS (5)
  - HAEMORRHOIDS [None]
  - GASTROINTESTINAL HAEMORRHAGE [None]
  - RECTAL HAEMORRHAGE [None]
  - ACTIVATED PARTIAL THROMBOPLASTIN TIME ABNORMAL [None]
  - DIVERTICULITIS [None]
